FAERS Safety Report 5571377-9 (Version None)
Quarter: 2007Q4

REPORT INFORMATION
  Report Type: 
  Country: None (occurrence: None)
  Receive Date: 20071221
  Receipt Date: 20071102
  Transmission Date: 20080405
  Serious: No
  Sender: FDA-Public Use
  Company Number: A0680268A

PATIENT
  Age: 45 Year
  Sex: Female
  Weight: 70.9 kg

DRUGS (2)
  1. FLUTICASONE PROPIONATE [Suspect]
     Indication: SNORING
     Dosage: 2SPR AT NIGHT
     Route: 045
     Dates: start: 20060101
  2. NO CONCURRENT MEDICATION [Concomitant]

REACTIONS (2)
  - MIDDLE INSOMNIA [None]
  - PHARMACEUTICAL PRODUCT COMPLAINT [None]
